FAERS Safety Report 9107612 (Version 2)
Quarter: 2013Q2

REPORT INFORMATION
  Report Type: Report from Study
  Country: CA (occurrence: CA)
  Receive Date: 20130221
  Receipt Date: 20130416
  Transmission Date: 20140414
  Serious: Yes (Hospitalization)
  Sender: FDA-Public Use
  Company Number: CA-ROCHE-1192754

PATIENT
  Age: 47 Year
  Sex: Male
  Weight: 76.2 kg

DRUGS (5)
  1. XELODA [Suspect]
     Indication: RECTAL CANCER
     Route: 048
     Dates: start: 201301, end: 2013
  2. CISPLATIN [Concomitant]
  3. KYTRIL [Concomitant]
  4. ZOFRAN [Concomitant]
  5. ZOPICLONE [Concomitant]

REACTIONS (3)
  - Stomatitis [Not Recovered/Not Resolved]
  - Mucosal inflammation [Not Recovered/Not Resolved]
  - Diarrhoea [Not Recovered/Not Resolved]
